FAERS Safety Report 5754449-5 (Version None)
Quarter: 2008Q2

REPORT INFORMATION
  Report Type: 
  Country: None (occurrence: None)
  Receive Date: 20080530
  Receipt Date: 20080506
  Transmission Date: 20081010
  Serious: No
  Sender: FDA-Public Use
  Company Number: US-BOEHRINGER INGELHEIM GMBH, GERMANY-2008-BP-07273PF

PATIENT
  Sex: Female
  Weight: 54 kg

DRUGS (7)
  1. SPIRIVA [Suspect]
     Indication: CHRONIC OBSTRUCTIVE PULMONARY DISEASE
     Dates: end: 20080422
  2. ACTONEL [Concomitant]
     Dates: start: 20050101
  3. AVAPRO [Concomitant]
     Dates: start: 20050101
  4. METHOTREXATE [Concomitant]
     Route: 048
     Dates: start: 20040101
  5. HUMIRA [Concomitant]
     Dates: start: 20080401
  6. ASPIRIN [Concomitant]
  7. LIPITOR [Concomitant]
     Dates: start: 20080201

REACTIONS (6)
  - CONVULSION [None]
  - DIZZINESS [None]
  - DYSKINESIA [None]
  - HEADACHE [None]
  - SKIN LACERATION [None]
  - SYNCOPE [None]
